FAERS Safety Report 7129440-7 (Version None)
Quarter: 2010Q4

REPORT INFORMATION
  Report Type: 
  Country: None (occurrence: None)
  Receive Date: 20101104
  Receipt Date: 20101028
  Transmission Date: 20110411
  Serious: Yes (Hospitalization, Other)
  Sender: FDA-Public Use
  Company Number: 2010SP025231

PATIENT
  Age: 29 Year
  Sex: Female
  Weight: 77.1115 kg

DRUGS (5)
  1. NUVARING [Suspect]
     Indication: CONTRACEPTION
     Dates: start: 20080801, end: 20081010
  2. NUVARING [Suspect]
     Indication: ENDOMETRIOSIS
     Dates: start: 20080801, end: 20081010
  3. NUVARING [Suspect]
     Indication: MENSTRUATION IRREGULAR
     Dates: start: 20080801, end: 20081010
  4. PREDNISONE [Concomitant]
  5. AUGMENTIN '125' [Concomitant]

REACTIONS (11)
  - CEREBRAL VENOUS THROMBOSIS [None]
  - CHEST PAIN [None]
  - DEEP VEIN THROMBOSIS [None]
  - FOLLICULITIS [None]
  - HYPERCOAGULATION [None]
  - MIGRAINE [None]
  - NAUSEA [None]
  - SINUSITIS [None]
  - SUBARACHNOID HAEMORRHAGE [None]
  - SUPERIOR SAGITTAL SINUS THROMBOSIS [None]
  - VOMITING [None]
